FAERS Safety Report 7347536-1 (Version None)
Quarter: 2011Q1

REPORT INFORMATION
  Report Type: 
  Country: None (occurrence: None)
  Receive Date: 20110311
  Receipt Date: 20110228
  Transmission Date: 20110831
  Serious: No
  Sender: FDA-Public Use
  Company Number: US-BAYER-2011-019504

PATIENT
  Sex: Female

DRUGS (1)
  1. SAFYRAL [Suspect]
     Dosage: UNK
     Route: 048
     Dates: start: 20110101

REACTIONS (1)
  - VAGINAL HAEMORRHAGE [None]
